FAERS Safety Report 5154143-8 (Version None)
Quarter: 2006Q4

REPORT INFORMATION
  Report Type: 
  Country: None (occurrence: None)
  Receive Date: 20061120
  Receipt Date: 20061016
  Transmission Date: 20070319
  Serious: Yes (Death, Hospitalization)
  Sender: FDA-Public Use
  Company Number: US-BRISTOL-MYERS SQUIBB COMPANY-13542881

PATIENT
  Age: 84 Year
  Sex: Female

DRUGS (14)
  1. TEQUIN [Suspect]
     Indication: INFECTION
     Route: 048
     Dates: start: 20041010
  2. GLYBURIDE [Concomitant]
     Indication: DIABETES MELLITUS
     Route: 048
     Dates: start: 20040915, end: 20041012
  3. APRESOLINE [Concomitant]
  4. NEURONTIN [Concomitant]
  5. LASIX [Concomitant]
  6. POTASSIUM CHLORIDE [Concomitant]
  7. ZESTRIL [Concomitant]
  8. LOPRESSOR [Concomitant]
  9. SYNTHROID [Concomitant]
  10. CATAPRES-TTS-1 [Concomitant]
     Route: 062
  11. SURFAK [Concomitant]
  12. LACTULOSE [Concomitant]
     Indication: CONSTIPATION
     Route: 048
  13. ACETAMINOPHEN [Concomitant]
     Indication: PAIN
     Route: 048
  14. ACETAMINOPHEN [Concomitant]
     Indication: PYREXIA
     Route: 048

REACTIONS (2)
  - CEREBROVASCULAR ACCIDENT [None]
  - HYPOGLYCAEMIA [None]
